FAERS Safety Report 14946397 (Version 1)
Quarter: 2018Q2

REPORT INFORMATION
  Report Type: Spontaneous
  Country: US (occurrence: US)
  Receive Date: 20180529
  Receipt Date: 20180529
  Transmission Date: 20180711
  Serious: No
  Sender: FDA-Public Use
  Company Number: US-SA-2018SA138707

PATIENT
  Age: 58 Year
  Sex: Male

DRUGS (1)
  1. ALIROCUMAB [Suspect]
     Active Substance: ALIROCUMAB
     Indication: PRODUCT USED FOR UNKNOWN INDICATION

REACTIONS (1)
  - Injury [Unknown]
